FAERS Safety Report 7374229-7 (Version None)
Quarter: 2011Q1

REPORT INFORMATION
  Report Type: 
  Country: None (occurrence: None)
  Receive Date: 20110325
  Receipt Date: 20110316
  Transmission Date: 20110831
  Serious: Yes (Other)
  Sender: FDA-Public Use
  Company Number: GB-NOVOPROD-324764

PATIENT
  Sex: Male

DRUGS (3)
  1. LANTUS [Suspect]
     Indication: PRODUCT USED FOR UNKNOWN INDICATION
     Dosage: UNK
     Dates: start: 20080101
  2. NOVORAPID [Suspect]
     Indication: TYPE 1 DIABETES MELLITUS
     Dosage: UNK
  3. OMEPRAZOLE [Concomitant]
     Dosage: 50 MG, QD
     Route: 048

REACTIONS (3)
  - ANXIETY [None]
  - MENTAL DISORDER [None]
  - BLOOD GLUCOSE DECREASED [None]
